FAERS Safety Report 4775774-0 (Version None)
Quarter: 2005Q3

REPORT INFORMATION
  Report Type: 
  Country: None (occurrence: None)
  Receive Date: 20050920
  Receipt Date: 20050920
  Transmission Date: 20060218
  Serious: Yes (Death)
  Sender: FDA-Public Use
  Company Number: None

PATIENT
  Sex: Female

DRUGS (1)
  1. HABITROL [Suspect]
     Indication: SMOKING CESSATION THERAPY
     Dosage: 21 MG 1/DAY-UP TO 2 WKS CUTANEOUS
     Route: 003
     Dates: start: 20050801

REACTIONS (1)
  - CEREBRAL HAEMORRHAGE [None]
